FAERS Safety Report 6814139-4 (Version None)
Quarter: 2010Q3

REPORT INFORMATION
  Report Type: 
  Country: None (occurrence: None)
  Receive Date: 20100702
  Receipt Date: 20100311
  Transmission Date: 20110219
  Serious: No
  Sender: FDA-Public Use
  Company Number: A0849695A

PATIENT
  Age: 6 Year
  Sex: Female

DRUGS (5)
  1. ADVAIR DISKUS 100/50 [Suspect]
     Indication: ASTHMA
     Dosage: 2PUFF TWICE PER DAY
     Route: 055
     Dates: start: 20090101, end: 20100301
  2. ADVAIR DISKUS 100/50 [Suspect]
     Dosage: 1PUFF TWICE PER DAY
     Route: 055
     Dates: start: 20090301, end: 20090101
  3. CLARITIN [Concomitant]
  4. SINGULAIR [Concomitant]
  5. NASONEX [Concomitant]

REACTIONS (3)
  - PRURITUS [None]
  - RASH [None]
  - TINEA INFECTION [None]
